FAERS Safety Report 5749167-3 (Version None)
Quarter: 2008Q2

REPORT INFORMATION
  Report Type: 
  Country: None (occurrence: None)
  Receive Date: 20080527
  Receipt Date: 20080519
  Transmission Date: 20081010
  Serious: Yes (Other)
  Sender: FDA-Public Use
  Company Number: US-BAYER-200810970BCC

PATIENT
  Age: 84 Year
  Sex: Female
  Weight: 73 kg

DRUGS (7)
  1. PHILLIPS MILK OF MAGNESIA WILD CHERRY [Suspect]
     Indication: CONSTIPATION
     Route: 048
     Dates: start: 19970101
  2. PHILLIPS MILK OF MAGNESIA FRESH MINT [Suspect]
     Indication: CONSTIPATION
     Route: 048
     Dates: start: 19970101
  3. ASPIRIN [Suspect]
     Indication: DRUG USE FOR UNKNOWN INDICATION
     Dosage: UNIT DOSE: 81 MG
     Route: 048
  4. SPRING VALLEY CALCIUM SUPPLEMENT [Concomitant]
  5. IRON SUPPLEMENT [Concomitant]
  6. MULTI-VITAMIN [Concomitant]
  7. LIPITOR [Concomitant]

REACTIONS (5)
  - DIARRHOEA [None]
  - DIZZINESS [None]
  - FATIGUE [None]
  - LOWER GASTROINTESTINAL HAEMORRHAGE [None]
  - WEIGHT DECREASED [None]
